FAERS Safety Report 20459916 (Version 2)
Quarter: 2022Q2

REPORT INFORMATION
  Report Type: Spontaneous
  Country: US (occurrence: None)
  Receive Date: 20220211
  Receipt Date: 20220401
  Transmission Date: 20220720
  Serious: Yes (Other)
  Sender: FDA-Public Use
  Company Number: US-ROCHE-3014140

PATIENT
  Age: 61 Year
  Sex: Male

DRUGS (4)
  1. ACTIVASE [Suspect]
     Active Substance: ALTEPLASE
     Indication: Thrombolysis
     Route: 065
     Dates: start: 20220126
  2. ACTIVASE [Suspect]
     Active Substance: ALTEPLASE
  3. ACTIVASE [Suspect]
     Active Substance: ALTEPLASE
     Indication: Haemorrhage prophylaxis
  4. ACTIVASE [Suspect]
     Active Substance: ALTEPLASE

REACTIONS (3)
  - Drug delivery system issue [Unknown]
  - Off label use [Unknown]
  - No adverse event [Unknown]
